FAERS Safety Report 25599565 (Version 1)
Quarter: 2025Q3

REPORT INFORMATION
  Report Type: Spontaneous
  Country: US (occurrence: US)
  Receive Date: 20250724
  Receipt Date: 20250724
  Transmission Date: 20251021
  Serious: Yes (Hospitalization)
  Sender: DR REDDYS
  Company Number: US-MLMSERVICE-20250710-PI575537-00273-1

PATIENT
  Age: 71 Year
  Sex: Female

DRUGS (1)
  1. PROPOFOL [Suspect]
     Active Substance: PROPOFOL
     Indication: Product used for unknown indication

REACTIONS (4)
  - Administration site extravasation [Recovering/Resolving]
  - Device placement issue [Recovering/Resolving]
  - Pleural effusion [Recovering/Resolving]
  - Leukocytosis [Unknown]
